FAERS Safety Report 8946943 (Version 1)
Quarter: 2012Q4

REPORT INFORMATION
  Report Type: 
  Country: CA (occurrence: CA)
  Receive Date: 20121205
  Receipt Date: 20121205
  Transmission Date: 20130627
  Serious: Yes (Other)
  Sender: FDA-Public Use
  Company Number: CA-ELI_LILLY_AND_COMPANY-CA201211007866

PATIENT
  Age: 78 Year
  Sex: Female

DRUGS (6)
  1. FORTEO [Suspect]
     Indication: OSTEOPOROSIS
     Dosage: 20 ug, qd
     Route: 058
     Dates: start: 20110128
  2. SYNTHYROID [Concomitant]
  3. CIPRALEX [Concomitant]
  4. OXAZEPAM [Concomitant]
  5. LORAZEPAM [Concomitant]
  6. ASPIRIN [Concomitant]
     Dosage: 81 mg, unknown

REACTIONS (2)
  - Breast cancer [Unknown]
  - Medication error [Unknown]
